FAERS Safety Report 24950666 (Version 3)
Quarter: 2025Q1

REPORT INFORMATION
  Report Type: Report from Study
  Country: ZA (occurrence: ZA)
  Receive Date: 20250210
  Receipt Date: 20250319
  Transmission Date: 20250409
  Serious: Yes (Other)
  Sender: NOVARTIS
  Company Number: ZA-002147023-NVSC2025ZA021833

PATIENT
  Age: 72 Year
  Sex: Male

DRUGS (1)
  1. INCLISIRAN [Suspect]
     Active Substance: INCLISIRAN
     Indication: Primary hypercholesterolaemia
     Route: 058
     Dates: start: 20241108

REACTIONS (1)
  - Low density lipoprotein increased [Unknown]
